FAERS Safety Report 7158367-X (Version None)
Quarter: 2010Q4

REPORT INFORMATION
  Report Type: 
  Country: None (occurrence: None)
  Receive Date: 20101214
  Receipt Date: 20100322
  Transmission Date: 20110411
  Serious: No
  Sender: FDA-Public Use
  Company Number: US-PFIZER INC-2010037332

PATIENT
  Sex: Female
  Weight: 99.8 kg

DRUGS (3)
  1. ARTHROTEC [Suspect]
     Indication: PAIN
     Dosage: 75/200 MG/MCG, 2X/DAY
     Route: 048
     Dates: start: 20100222
  2. BENAZEPRIL [Concomitant]
     Dosage: 40 MG, UNK
  3. ALLEGRA [Concomitant]
     Indication: SEASONAL ALLERGY
     Dosage: UNK

REACTIONS (6)
  - ABDOMINAL PAIN [None]
  - DIARRHOEA [None]
  - FLATULENCE [None]
  - GASTROINTESTINAL DISORDER [None]
  - GASTROOESOPHAGEAL REFLUX DISEASE [None]
  - NAUSEA [None]
